FAERS Safety Report 26103581 (Version 1)
Quarter: 2025Q4

REPORT INFORMATION
  Report Type: Spontaneous
  Country: EU (occurrence: EU)
  Receive Date: 20251129
  Receipt Date: 20251129
  Transmission Date: 20260118
  Serious: Yes (Hospitalization, Other)
  Sender: AUROBINDO
  Company Number: EU-MLMSERVICE-20251110-PI707421-00307-1

PATIENT
  Age: 2 Year
  Sex: Female

DRUGS (1)
  1. TAMOXIFEN [Suspect]
     Active Substance: TAMOXIFEN
     Indication: Product used for unknown indication
     Dosage: UNK (SHE MAY HAVE INGESTED BETWEEN 10 AND 20 TABLETS OF 20 MG EACH, CORRESPONDING TO A TOTAL DOSE OF 200?400 MG. ASSUMING A BIOAVAILABILITY OF 100 %, THE INGESTED QUANTITY OF TAMOXIFEN WAS APPROXIMATELY 31?37 MG, SUGGESTING THAT THE PATIENT HAD INGESTED TWO 20 MG TABLETS.)

REACTIONS (3)
  - Electrocardiogram QT prolonged [Recovered/Resolved]
  - Accidental poisoning [Recovered/Resolved]
  - Accidental exposure to product by child [Recovered/Resolved]
